FAERS Safety Report 8286507-8 (Version None)
Quarter: 2012Q2

REPORT INFORMATION
  Report Type: 
  Country: None (occurrence: None)
  Receive Date: 20120416
  Receipt Date: 20120413
  Transmission Date: 20120825
  Serious: Yes (Other)
  Sender: FDA-Public Use
  Company Number: US-PFIZER INC-2012092785

PATIENT
  Sex: Male
  Weight: 91.156 kg

DRUGS (3)
  1. DARVON [Suspect]
     Indication: PAIN
     Dosage: UNK
  2. CHANTIX [Suspect]
     Indication: SMOKING CESSATION THERAPY
     Dosage: 0.5 MG,DAILY
     Route: 048
     Dates: start: 20120101
  3. OXYCODONE [Concomitant]
     Indication: PAIN
     Dosage: 10 MG, EVERY 6-12 HOURS

REACTIONS (9)
  - FALL [None]
  - EXPIRED DRUG ADMINISTERED [None]
  - CARDIAC DISORDER [None]
  - BLOOD TEST ABNORMAL [None]
  - LOSS OF CONSCIOUSNESS [None]
  - DRUG INEFFECTIVE [None]
  - FEELING ABNORMAL [None]
  - MALAISE [None]
  - TOBACCO USER [None]
